FAERS Safety Report 12731744 (Version 1)
Quarter: 2016Q3

REPORT INFORMATION
  Report Type: Spontaneous
  Country: US (occurrence: US)
  Receive Date: 20160909
  Receipt Date: 20160909
  Transmission Date: 20161109
  Serious: No
  Sender: FDA-Public Use
  Company Number: None

PATIENT
  Age: 42 Year
  Sex: Female
  Weight: 52.65 kg

DRUGS (9)
  1. FAMOTIDINE. [Concomitant]
     Active Substance: FAMOTIDINE
  2. POTASSIUM CHLORIDE. [Concomitant]
     Active Substance: POTASSIUM CHLORIDE
  3. LOMOTIL [Concomitant]
     Active Substance: ATROPINE SULFATE\DIPHENOXYLATE HYDROCHLORIDE
  4. DIAZEPAM. [Concomitant]
     Active Substance: DIAZEPAM
  5. LORATADINE. [Concomitant]
     Active Substance: LORATADINE
  6. PROBIOTICS [Concomitant]
     Active Substance: PROBIOTICS NOS
  7. OXYCODONE/ACETAMINOPHEN 5/325 ALVOGEN [Suspect]
     Active Substance: ACETAMINOPHEN\OXYCODONE HYDROCHLORIDE
     Indication: PAIN
     Dosage: 120 TABLETS 4 TIMES A DAY ORAL
     Route: 048
     Dates: start: 20160907, end: 20160909
  8. LOTRONEX [Concomitant]
     Active Substance: ALOSETRON HYDROCHLORIDE
  9. MAGNESIUM OXIDE. [Concomitant]
     Active Substance: MAGNESIUM OXIDE

REACTIONS (3)
  - Product substitution issue [None]
  - Nausea [None]
  - Therapy non-responder [None]

NARRATIVE: CASE EVENT DATE: 20160908
